FAERS Safety Report 18181013 (Version 6)
Quarter: 2024Q1

REPORT INFORMATION
  Report Type: Spontaneous
  Country: CA (occurrence: CA)
  Receive Date: 20200821
  Receipt Date: 20240216
  Transmission Date: 20240410
  Serious: Yes (Hospitalization, Other)
  Sender: FDA-Public Use
  Company Number: CA-HLS-202001075

PATIENT
  Age: 40 Year
  Sex: Male

DRUGS (264)
  1. HALOPERIDOL DECANOATE [Suspect]
     Active Substance: HALOPERIDOL DECANOATE
     Indication: Schizophrenia
     Dosage: LIQUID INTRAMUSCULAR
     Route: 065
  2. GABAPENTIN [Suspect]
     Active Substance: GABAPENTIN
     Indication: Schizophrenia
     Dosage: NOT SPECIFIED
     Route: 065
  3. FLUPENTIXOL [Suspect]
     Active Substance: FLUPENTIXOL
     Indication: Schizophrenia
     Route: 065
  4. FLUOXETINE HYDROCHLORIDE [Suspect]
     Active Substance: FLUOXETINE HYDROCHLORIDE
     Indication: Schizophrenia
     Route: 065
  5. CLOMIPRAMINE [Suspect]
     Active Substance: CLOMIPRAMINE
     Indication: Schizophrenia
     Route: 065
  6. CITALOPRAM [Suspect]
     Active Substance: CITALOPRAM HYDROBROMIDE
     Indication: Schizophrenia
     Route: 065
  7. ASENAPINE MALEATE [Suspect]
     Active Substance: ASENAPINE MALEATE
     Indication: Schizophrenia
     Route: 065
  8. ARIPIPRAZOLE [Suspect]
     Active Substance: ARIPIPRAZOLE
     Indication: Schizophrenia
     Dosage: NOT SPECIFIED
     Route: 065
  9. AMISULPRIDE [Suspect]
     Active Substance: AMISULPRIDE
     Indication: Schizophrenia
     Dosage: NOT SPECIFIED
     Route: 065
  10. CLOZAPINE [Suspect]
     Active Substance: CLOZAPINE
     Indication: Schizophrenia
     Route: 065
  11. CLOZAPINE [Suspect]
     Active Substance: CLOZAPINE
     Indication: Psychotic disorder
     Route: 065
  12. LITHIUM CARBONATE [Suspect]
     Active Substance: LITHIUM CARBONATE
     Indication: Product used for unknown indication
     Route: 065
  13. LITHIUM CARBONATE [Suspect]
     Active Substance: LITHIUM CARBONATE
     Indication: Product used for unknown indication
     Route: 065
  14. LITHIUM [Suspect]
     Active Substance: LITHIUM
     Indication: Product used for unknown indication
     Route: 065
  15. HALOPERIDOL DECANOATE [Suspect]
     Active Substance: HALOPERIDOL DECANOATE
     Indication: Product used for unknown indication
     Route: 065
  16. HALOPERIDOL [Suspect]
     Active Substance: HALOPERIDOL
     Indication: Product used for unknown indication
     Route: 065
  17. GABAPENTIN [Suspect]
     Active Substance: GABAPENTIN
     Indication: Product used for unknown indication
     Route: 065
  18. GABAPENTIN [Suspect]
     Active Substance: GABAPENTIN
     Indication: Product used for unknown indication
     Route: 065
  19. FLUPENTIXOL [Suspect]
     Active Substance: FLUPENTIXOL
     Indication: Product used for unknown indication
     Route: 065
  20. FLUOXETINE [Suspect]
     Active Substance: FLUOXETINE HYDROCHLORIDE
     Indication: Product used for unknown indication
     Route: 065
  21. CITALOPRAM HYDROBROMIDE [Suspect]
     Active Substance: CITALOPRAM HYDROBROMIDE
     Indication: Depression
     Route: 065
  22. CITALOPRAM HYDROBROMIDE [Suspect]
     Active Substance: CITALOPRAM HYDROBROMIDE
     Indication: Schizophrenia
     Route: 065
  23. ZIPRASIDONE MESYLATE [Concomitant]
     Active Substance: ZIPRASIDONE MESYLATE
     Indication: Product used for unknown indication
     Route: 065
  24. ZIPRASIDONE HYDROCHLORIDE [Suspect]
     Active Substance: ZIPRASIDONE HYDROCHLORIDE
     Indication: Product used for unknown indication
     Route: 048
  25. ZIPRASIDONE [Suspect]
     Active Substance: ZIPRASIDONE
     Indication: Product used for unknown indication
     Route: 065
  26. VALPROATE SODIUM [Suspect]
     Active Substance: VALPROATE SODIUM
     Indication: Product used for unknown indication
     Dosage: 1200 MG
     Route: 065
  27. VALPROATE SODIUM [Suspect]
     Active Substance: VALPROATE SODIUM
     Indication: Product used for unknown indication
     Route: 065
  28. TRIFLUOPERAZINE HYDROCHLORIDE [Suspect]
     Active Substance: TRIFLUOPERAZINE HYDROCHLORIDE
     Indication: Product used for unknown indication
     Route: 065
  29. THIORIDAZINE [Suspect]
     Active Substance: THIORIDAZINE
     Indication: Product used for unknown indication
     Route: 065
  30. SAPHRIS [Suspect]
     Active Substance: ASENAPINE MALEATE
     Indication: Product used for unknown indication
     Route: 065
  31. RISPERIDONE [Suspect]
     Active Substance: RISPERIDONE
     Indication: Product used for unknown indication
     Route: 065
  32. QUETIAPINE FUMARATE [Suspect]
     Active Substance: QUETIAPINE FUMARATE
     Indication: Product used for unknown indication
     Route: 065
  33. QUETIAPINE [Suspect]
     Active Substance: QUETIAPINE
     Indication: Product used for unknown indication
     Route: 065
  34. PERPHENAZINE [Suspect]
     Active Substance: PERPHENAZINE
     Indication: Product used for unknown indication
     Route: 065
  35. OLANZAPINE [Suspect]
     Active Substance: OLANZAPINE
     Indication: Product used for unknown indication
     Route: 065
  36. LOXAPINE SUCCINATE [Suspect]
     Active Substance: LOXAPINE SUCCINATE
     Indication: Product used for unknown indication
     Route: 065
  37. LOXAPINE [Suspect]
     Active Substance: LOXAPINE
     Indication: Product used for unknown indication
     Route: 065
  38. LOXAPINE [Suspect]
     Active Substance: LOXAPINE
     Indication: Product used for unknown indication
     Route: 065
  39. LOXAPINE [Suspect]
     Active Substance: LOXAPINE
     Indication: Product used for unknown indication
     Route: 065
  40. Abiliy [Concomitant]
     Indication: Psychotherapy
     Route: 065
  41. Abiliy [Concomitant]
     Indication: Schizophrenia
     Route: 065
  42. AMISULPRIDE [Suspect]
     Active Substance: AMISULPRIDE
     Indication: Schizophrenia
     Dosage: AMOUNT: 1200 MILLIGRAM?NOT SPECIFIED DOSAGE FORM
     Route: 065
  43. ARIPIPRAZOLE [Suspect]
     Active Substance: ARIPIPRAZOLE
     Indication: Schizophrenia
     Dosage: AMOUNT: 30 MILLIGRAM?NOT SPECIFIED DOSAGE FORM
     Route: 065
  44. ASENAPINE MALEATE [Suspect]
     Active Substance: ASENAPINE MALEATE
     Indication: Schizophrenia
     Route: 065
  45. CITALOPRAM [Suspect]
     Active Substance: CITALOPRAM HYDROBROMIDE
     Indication: Schizophrenia
     Dosage: AMOUNT: 80 MILLIGRAM
     Route: 065
  46. CLOMIPRAMINE [Suspect]
     Active Substance: CLOMIPRAMINE
     Indication: Schizophrenia
     Dosage: AMOUNT: 250 MILLIGRAM
     Route: 065
  47. CLOZAPINE [Suspect]
     Active Substance: CLOZAPINE
     Indication: Schizophrenia
     Dosage: AMOUNT: 350 MILLIGRAM?TABLETS DOSAGE FORM
     Route: 065
  48. FLUOXETINE HYDROCHLORIDE [Suspect]
     Active Substance: FLUOXETINE HYDROCHLORIDE
     Indication: Schizophrenia
     Dosage: AMOUNT: 80 MILLIGRAM
     Route: 065
  49. FLUPENTIXOL [Suspect]
     Active Substance: FLUPENTIXOL
     Indication: Schizophrenia
     Dosage: AMOUNT: 6 MILLIGRAM
     Route: 065
  50. FLUPENTIXOL [Suspect]
     Active Substance: FLUPENTIXOL
     Indication: Schizophrenia
     Dosage: AMOUNT: 60 MILLIGRAM
     Route: 065
  51. GABAPENTIN [Suspect]
     Active Substance: GABAPENTIN
     Indication: Schizophrenia
     Dosage: AMOUNT: 1800 MILLIGRAM?NOT SPECIFIED DOSAGE FORM
     Route: 065
  52. GABAPENTIN [Suspect]
     Active Substance: GABAPENTIN
     Indication: Schizophrenia
     Dosage: AMOUNT: 600 MILLIGRAM?NOT SPECIFIED DOSAGE FORM
     Route: 065
  53. HALOPERIDOL [Suspect]
     Active Substance: HALOPERIDOL
     Indication: Product used for unknown indication
     Dosage: AMOUNT: 5 MILLIGRAM?NOT SPECIFIED DOSAGE FORM
     Route: 065
  54. HALOPERIDOL DECANOATE [Suspect]
     Active Substance: HALOPERIDOL DECANOATE
     Indication: Schizophrenia
     Dosage: AMOUNT: 5 MILLIGRAM?LIQUID INTRAMUSCULAR DOSAGE FORM
     Route: 065
  55. LITHIUM [Suspect]
     Active Substance: LITHIUM
     Indication: Product used for unknown indication
     Route: 065
  56. LITHIUM CARBONATE [Suspect]
     Active Substance: LITHIUM CARBONATE
     Indication: Schizophrenia
     Dosage: AMOUNT: 1050 MILLIGRAM?NOT SPECIFIED DOSAGE FORM
     Route: 065
  57. LITHIUM CARBONATE [Suspect]
     Active Substance: LITHIUM CARBONATE
     Indication: Schizophrenia
     Dosage: AMOUNT: 1800 MILLIGRAM?NOT SPECIFIED DOSAGE FORM
     Route: 065
  58. LITHIUM CARBONATE [Suspect]
     Active Substance: LITHIUM CARBONATE
     Indication: Schizophrenia
     Dosage: AMOUNT: 2400 MILLIGRAM?NOT SPECIFIED DOSAGE FORM
     Route: 065
  59. LOXAPINE [Suspect]
     Active Substance: LOXAPINE
     Indication: Product used for unknown indication
     Dosage: AMOUNT: 200 MILLIGRAM?NOT SPECIFIED DOSAGE FORM
     Route: 065
  60. LOXAPINE [Suspect]
     Active Substance: LOXAPINE
     Indication: Product used for unknown indication
     Dosage: AMOUNT: 50 MILLIGRAM?NOT SPECIFIED DOSAGE FORM
     Route: 065
  61. LOXAPINE [Suspect]
     Active Substance: LOXAPINE
     Indication: Product used for unknown indication
     Dosage: AMOUNT: 75 MILLIGRAM?NOT SPECIFIED DOSAGE FORM
     Route: 065
  62. LOXAPINE SUCCINATE [Suspect]
     Active Substance: LOXAPINE SUCCINATE
     Indication: Schizophrenia
     Dosage: AMOUNT: 50 MILLIGRAM
     Route: 065
  63. LOXAPINE SUCCINATE [Suspect]
     Active Substance: LOXAPINE SUCCINATE
     Indication: Schizophrenia
     Dosage: AMOUNT: 75 MILLIGRAM
     Route: 065
  64. OLANZAPINE [Suspect]
     Active Substance: OLANZAPINE
     Indication: Schizophrenia
     Dosage: AMOUNT: 15 MILLIGRAM
     Route: 065
  65. ZIPRASIDONE [Suspect]
     Active Substance: ZIPRASIDONE
     Indication: Schizophrenia
     Dosage: AMOUNT: 40 MILLIGRAM
     Route: 065
  66. PERPHENAZINE [Suspect]
     Active Substance: PERPHENAZINE
     Indication: Schizophrenia
     Dosage: AMOUNT: 32 MILLIGRAM?NOT SPECIFIED DOSAGE FORM
     Route: 065
  67. PERPHENAZINE [Suspect]
     Active Substance: PERPHENAZINE
     Indication: Schizophrenia
     Dosage: NOT SPECIFIED DOSAGE FORM
     Route: 065
  68. QUETIAPINE [Suspect]
     Active Substance: QUETIAPINE
     Indication: Product used for unknown indication
     Dosage: AMOUNT: 600 MILLIGRAM?TABLETS DOSAGE FORM
     Route: 065
  69. QUETIAPINE FUMARATE [Suspect]
     Active Substance: QUETIAPINE FUMARATE
     Indication: Schizophrenia
     Dosage: AMOUNT: 600 MILLIGRAM
     Route: 065
  70. RISPERIDONE [Suspect]
     Active Substance: RISPERIDONE
     Indication: Schizophrenia
     Dosage: AMOUNT: 3 MILLIGRAM?NOT SPECIFIED DOSAGE FORM
     Route: 065
  71. SAPHRIS [Suspect]
     Active Substance: ASENAPINE MALEATE
     Indication: Product used for unknown indication
     Dosage: AMOUNT: 100 MILLIGRAM?TABLETS DOSAGE FORM
     Route: 065
  72. VALPROATE SODIUM [Concomitant]
     Active Substance: VALPROATE SODIUM
     Indication: Product used for unknown indication
     Dosage: AMOUNT: 1000 MILLIGRAM
     Route: 065
  73. THIORIDAZINE [Suspect]
     Active Substance: THIORIDAZINE
     Indication: Schizophrenia
     Dosage: SUSPENSION ORAL DOSAGE FORM
     Route: 065
  74. TRIFLUOPERAZINE [Suspect]
     Active Substance: TRIFLUOPERAZINE HYDROCHLORIDE
     Indication: Schizophrenia
     Dosage: AMOUNT: 50 MILLIGRAM?TABLETS DOSAGE FORM
     Route: 065
  75. TRIFLUOPERAZINE HYDROCHLORIDE [Suspect]
     Active Substance: TRIFLUOPERAZINE HYDROCHLORIDE
     Indication: Product used for unknown indication
     Dosage: AMOUNT: 50 MILLIGRAM
     Route: 065
  76. VALPROATE SODIUM [Suspect]
     Active Substance: VALPROATE SODIUM
     Indication: Product used for unknown indication
     Dosage: AMOUNT: 1250 MILLIGRAM?TABLETS DOSAGE FORM
     Route: 065
  77. ZIPRASIDONE [Suspect]
     Active Substance: ZIPRASIDONE
     Indication: Product used for unknown indication
     Dosage: AMOUNT: 100 MILLIGRAM
     Route: 065
  78. ZIPRASIDONE HYDROCHLORIDE [Suspect]
     Active Substance: ZIPRASIDONE HYDROCHLORIDE
     Indication: Schizophrenia
     Dosage: AMOUNT: 100 MILLIGRAM
     Route: 065
  79. OLANZAPINE [Suspect]
     Active Substance: OLANZAPINE
     Indication: Schizophrenia
     Dosage: AMOUNT: 100 MILLIGRAM
     Route: 065
  80. OLANZAPINE [Suspect]
     Active Substance: OLANZAPINE
     Indication: Product used for unknown indication
     Dosage: AMOUNT: 100 MILLIGRAM
     Route: 065
  81. OLANZAPINE [Suspect]
     Active Substance: OLANZAPINE
     Indication: Schizophrenia
     Dosage: AMOUNT: 3 MILLIGRAM?NOT SPECIFIED DOSAGE FORM
     Route: 065
  82. OLANZAPINE [Suspect]
     Active Substance: OLANZAPINE
     Indication: Product used for unknown indication
     Dosage: AMOUNT: 3 MILLIGRAM?NOT SPECIFIED DOSAGE FORM
     Route: 065
  83. OLANZAPINE [Suspect]
     Active Substance: OLANZAPINE
     Indication: Schizophrenia
     Dosage: AMOUNT: 600 MILLIGRAM
     Route: 005
  84. OLANZAPINE [Suspect]
     Active Substance: OLANZAPINE
     Indication: Product used for unknown indication
     Dosage: AMOUNT: 600 MILLIGRAM
     Route: 005
  85. OLANZAPINE [Suspect]
     Active Substance: OLANZAPINE
     Indication: Schizophrenia
     Route: 065
  86. OLANZAPINE [Suspect]
     Active Substance: OLANZAPINE
     Indication: Product used for unknown indication
     Route: 065
  87. OLANZAPINE [Suspect]
     Active Substance: OLANZAPINE
     Indication: Schizophrenia
     Dosage: NOT SPECIFIED DOSAGE FORM
     Route: 065
  88. OLANZAPINE [Suspect]
     Active Substance: OLANZAPINE
     Indication: Product used for unknown indication
     Dosage: NOT SPECIFIED DOSAGE FORM
     Route: 065
  89. OLANZAPINE [Suspect]
     Active Substance: OLANZAPINE
     Indication: Schizophrenia
     Dosage: SUSPENSION ORAL DOSAGE FORM
     Route: 048
  90. OLANZAPINE [Suspect]
     Active Substance: OLANZAPINE
     Indication: Product used for unknown indication
     Dosage: SUSPENSION ORAL DOSAGE FORM
     Route: 048
  91. OLANZAPINE [Suspect]
     Active Substance: OLANZAPINE
     Indication: Schizophrenia
     Dosage: TABLETS DOSAGE FORM
     Route: 065
  92. OLANZAPINE [Suspect]
     Active Substance: OLANZAPINE
     Indication: Product used for unknown indication
     Dosage: TABLETS DOSAGE FORM
     Route: 065
  93. ABILIFY [Concomitant]
     Active Substance: ARIPIPRAZOLE
     Indication: Schizophrenia
     Dosage: AMOUNT: 100 MILLIGRAM
     Route: 065
  94. ABILIFY [Concomitant]
     Active Substance: ARIPIPRAZOLE
     Indication: Product used for unknown indication
     Dosage: AMOUNT: 100 MILLIGRAM
     Route: 065
  95. ABILIFY [Concomitant]
     Active Substance: ARIPIPRAZOLE
     Indication: Schizophrenia
     Dosage: AMOUNT: 1200 MILLIGRAM?NOT SPECIFIED DOSAGE FORM
     Route: 065
  96. ABILIFY [Concomitant]
     Active Substance: ARIPIPRAZOLE
     Indication: Product used for unknown indication
     Dosage: AMOUNT: 1200 MILLIGRAM?NOT SPECIFIED DOSAGE FORM
     Route: 065
  97. ABILIFY [Concomitant]
     Active Substance: ARIPIPRAZOLE
     Indication: Schizophrenia
     Dosage: AMOUNT: 30 MILLIGRAM?NOT SPECIFIED DOSAGE FORM
     Route: 065
  98. ABILIFY [Concomitant]
     Active Substance: ARIPIPRAZOLE
     Indication: Product used for unknown indication
     Dosage: AMOUNT: 30 MILLIGRAM?NOT SPECIFIED DOSAGE FORM
     Route: 065
  99. ABILIFY [Concomitant]
     Active Substance: ARIPIPRAZOLE
     Indication: Schizophrenia
     Dosage: TABLETS DOSAGE FORM
     Route: 065
  100. ABILIFY [Concomitant]
     Active Substance: ARIPIPRAZOLE
     Indication: Product used for unknown indication
     Dosage: TABLETS DOSAGE FORM
     Route: 065
  101. CITALOPRAM HYDROBROMIDE [Suspect]
     Active Substance: CITALOPRAM HYDROBROMIDE
     Indication: Affective disorder
     Dosage: AMOUNT: 100 MILLIGRAM
     Route: 065
  102. CITALOPRAM HYDROBROMIDE [Suspect]
     Active Substance: CITALOPRAM HYDROBROMIDE
     Indication: Schizophrenia
     Dosage: AMOUNT: 100 MILLIGRAM
     Route: 065
  103. CITALOPRAM HYDROBROMIDE [Suspect]
     Active Substance: CITALOPRAM HYDROBROMIDE
     Indication: Psychotic disorder
     Dosage: AMOUNT: 100 MILLIGRAM
     Route: 065
  104. CITALOPRAM HYDROBROMIDE [Suspect]
     Active Substance: CITALOPRAM HYDROBROMIDE
     Indication: Product used for unknown indication
     Dosage: AMOUNT: 100 MILLIGRAM
     Route: 065
  105. CITALOPRAM HYDROBROMIDE [Suspect]
     Active Substance: CITALOPRAM HYDROBROMIDE
     Indication: Affective disorder
     Dosage: AMOUNT: 100 MILLIGRAM
     Route: 048
  106. CITALOPRAM HYDROBROMIDE [Suspect]
     Active Substance: CITALOPRAM HYDROBROMIDE
     Indication: Schizophrenia
     Dosage: AMOUNT: 100 MILLIGRAM
     Route: 048
  107. CITALOPRAM HYDROBROMIDE [Suspect]
     Active Substance: CITALOPRAM HYDROBROMIDE
     Indication: Psychotic disorder
     Dosage: AMOUNT: 100 MILLIGRAM
     Route: 048
  108. CITALOPRAM HYDROBROMIDE [Suspect]
     Active Substance: CITALOPRAM HYDROBROMIDE
     Indication: Product used for unknown indication
     Dosage: AMOUNT: 100 MILLIGRAM
     Route: 048
  109. CITALOPRAM HYDROBROMIDE [Suspect]
     Active Substance: CITALOPRAM HYDROBROMIDE
     Indication: Affective disorder
     Dosage: AMOUNT: 1000 MILLIGRAM?TABLETS DOSAGE FORM
     Route: 048
  110. CITALOPRAM HYDROBROMIDE [Suspect]
     Active Substance: CITALOPRAM HYDROBROMIDE
     Indication: Schizophrenia
     Dosage: AMOUNT: 1000 MILLIGRAM?TABLETS DOSAGE FORM
     Route: 048
  111. CITALOPRAM HYDROBROMIDE [Suspect]
     Active Substance: CITALOPRAM HYDROBROMIDE
     Indication: Psychotic disorder
     Dosage: AMOUNT: 1000 MILLIGRAM?TABLETS DOSAGE FORM
     Route: 048
  112. CITALOPRAM HYDROBROMIDE [Suspect]
     Active Substance: CITALOPRAM HYDROBROMIDE
     Indication: Product used for unknown indication
     Dosage: AMOUNT: 1000 MILLIGRAM?TABLETS DOSAGE FORM
     Route: 048
  113. CITALOPRAM HYDROBROMIDE [Suspect]
     Active Substance: CITALOPRAM HYDROBROMIDE
     Indication: Affective disorder
     Dosage: AMOUNT: 1050 MILLIGRAM?NOT SPECIFIED DOSAGE FORM
     Route: 065
  114. CITALOPRAM HYDROBROMIDE [Suspect]
     Active Substance: CITALOPRAM HYDROBROMIDE
     Indication: Schizophrenia
     Dosage: AMOUNT: 1050 MILLIGRAM?NOT SPECIFIED DOSAGE FORM
     Route: 065
  115. CITALOPRAM HYDROBROMIDE [Suspect]
     Active Substance: CITALOPRAM HYDROBROMIDE
     Indication: Psychotic disorder
     Dosage: AMOUNT: 1050 MILLIGRAM?NOT SPECIFIED DOSAGE FORM
     Route: 065
  116. CITALOPRAM HYDROBROMIDE [Suspect]
     Active Substance: CITALOPRAM HYDROBROMIDE
     Indication: Product used for unknown indication
     Dosage: AMOUNT: 1050 MILLIGRAM?NOT SPECIFIED DOSAGE FORM
     Route: 065
  117. CITALOPRAM HYDROBROMIDE [Suspect]
     Active Substance: CITALOPRAM HYDROBROMIDE
     Indication: Affective disorder
     Dosage: AMOUNT: 15 MILLIGRAM?NOT SPECIFIED DOSAGE FORM
     Route: 065
  118. CITALOPRAM HYDROBROMIDE [Suspect]
     Active Substance: CITALOPRAM HYDROBROMIDE
     Indication: Schizophrenia
     Dosage: AMOUNT: 15 MILLIGRAM?NOT SPECIFIED DOSAGE FORM
     Route: 065
  119. CITALOPRAM HYDROBROMIDE [Suspect]
     Active Substance: CITALOPRAM HYDROBROMIDE
     Indication: Psychotic disorder
     Dosage: AMOUNT: 15 MILLIGRAM?NOT SPECIFIED DOSAGE FORM
     Route: 065
  120. CITALOPRAM HYDROBROMIDE [Suspect]
     Active Substance: CITALOPRAM HYDROBROMIDE
     Indication: Product used for unknown indication
     Dosage: AMOUNT: 15 MILLIGRAM?NOT SPECIFIED DOSAGE FORM
     Route: 065
  121. CITALOPRAM HYDROBROMIDE [Suspect]
     Active Substance: CITALOPRAM HYDROBROMIDE
     Indication: Affective disorder
     Dosage: AMOUNT: 1800 MILLIGRAM?NOT SPECIFIED DOSAGE FORM
     Route: 065
  122. CITALOPRAM HYDROBROMIDE [Suspect]
     Active Substance: CITALOPRAM HYDROBROMIDE
     Indication: Schizophrenia
     Dosage: AMOUNT: 1800 MILLIGRAM?NOT SPECIFIED DOSAGE FORM
     Route: 065
  123. CITALOPRAM HYDROBROMIDE [Suspect]
     Active Substance: CITALOPRAM HYDROBROMIDE
     Indication: Psychotic disorder
     Dosage: AMOUNT: 1800 MILLIGRAM?NOT SPECIFIED DOSAGE FORM
     Route: 065
  124. CITALOPRAM HYDROBROMIDE [Suspect]
     Active Substance: CITALOPRAM HYDROBROMIDE
     Indication: Product used for unknown indication
     Dosage: AMOUNT: 1800 MILLIGRAM?NOT SPECIFIED DOSAGE FORM
     Route: 065
  125. CITALOPRAM HYDROBROMIDE [Suspect]
     Active Substance: CITALOPRAM HYDROBROMIDE
     Indication: Affective disorder
     Dosage: AMOUNT: 20 MILLIGRAM?NOT SPECIFIED DOSAGE FORM
     Route: 065
  126. CITALOPRAM HYDROBROMIDE [Suspect]
     Active Substance: CITALOPRAM HYDROBROMIDE
     Indication: Schizophrenia
     Dosage: AMOUNT: 20 MILLIGRAM?NOT SPECIFIED DOSAGE FORM
     Route: 065
  127. CITALOPRAM HYDROBROMIDE [Suspect]
     Active Substance: CITALOPRAM HYDROBROMIDE
     Indication: Psychotic disorder
     Dosage: AMOUNT: 20 MILLIGRAM?NOT SPECIFIED DOSAGE FORM
     Route: 065
  128. CITALOPRAM HYDROBROMIDE [Suspect]
     Active Substance: CITALOPRAM HYDROBROMIDE
     Indication: Product used for unknown indication
     Dosage: AMOUNT: 20 MILLIGRAM?NOT SPECIFIED DOSAGE FORM
     Route: 065
  129. CITALOPRAM HYDROBROMIDE [Suspect]
     Active Substance: CITALOPRAM HYDROBROMIDE
     Indication: Affective disorder
     Dosage: AMOUNT: 200 MILLIGRAM
     Route: 065
  130. CITALOPRAM HYDROBROMIDE [Suspect]
     Active Substance: CITALOPRAM HYDROBROMIDE
     Indication: Schizophrenia
     Dosage: AMOUNT: 200 MILLIGRAM
     Route: 065
  131. CITALOPRAM HYDROBROMIDE [Suspect]
     Active Substance: CITALOPRAM HYDROBROMIDE
     Indication: Psychotic disorder
     Dosage: AMOUNT: 200 MILLIGRAM
     Route: 065
  132. CITALOPRAM HYDROBROMIDE [Suspect]
     Active Substance: CITALOPRAM HYDROBROMIDE
     Indication: Product used for unknown indication
     Dosage: AMOUNT: 200 MILLIGRAM
     Route: 065
  133. CITALOPRAM HYDROBROMIDE [Suspect]
     Active Substance: CITALOPRAM HYDROBROMIDE
     Indication: Affective disorder
     Dosage: AMOUNT: 200 MILLIGRAM
     Route: 065
  134. CITALOPRAM HYDROBROMIDE [Suspect]
     Active Substance: CITALOPRAM HYDROBROMIDE
     Indication: Schizophrenia
     Dosage: AMOUNT: 200 MILLIGRAM
     Route: 065
  135. CITALOPRAM HYDROBROMIDE [Suspect]
     Active Substance: CITALOPRAM HYDROBROMIDE
     Indication: Psychotic disorder
     Dosage: AMOUNT: 200 MILLIGRAM
     Route: 065
  136. CITALOPRAM HYDROBROMIDE [Suspect]
     Active Substance: CITALOPRAM HYDROBROMIDE
     Indication: Product used for unknown indication
     Dosage: AMOUNT: 200 MILLIGRAM
     Route: 065
  137. CITALOPRAM HYDROBROMIDE [Suspect]
     Active Substance: CITALOPRAM HYDROBROMIDE
     Indication: Affective disorder
     Dosage: AMOUNT: 250 MILLIGRAM?NOT SPECIFIED DOSAGE FORM?THERAPY DURATION: 12 MONTHS
     Route: 065
  138. CITALOPRAM HYDROBROMIDE [Suspect]
     Active Substance: CITALOPRAM HYDROBROMIDE
     Indication: Schizophrenia
     Dosage: AMOUNT: 250 MILLIGRAM?NOT SPECIFIED DOSAGE FORM?THERAPY DURATION: 12 MONTHS
     Route: 065
  139. CITALOPRAM HYDROBROMIDE [Suspect]
     Active Substance: CITALOPRAM HYDROBROMIDE
     Indication: Psychotic disorder
     Dosage: AMOUNT: 250 MILLIGRAM?NOT SPECIFIED DOSAGE FORM?THERAPY DURATION: 12 MONTHS
     Route: 065
  140. CITALOPRAM HYDROBROMIDE [Suspect]
     Active Substance: CITALOPRAM HYDROBROMIDE
     Indication: Product used for unknown indication
     Dosage: AMOUNT: 250 MILLIGRAM?NOT SPECIFIED DOSAGE FORM?THERAPY DURATION: 12 MONTHS
     Route: 065
  141. CITALOPRAM HYDROBROMIDE [Suspect]
     Active Substance: CITALOPRAM HYDROBROMIDE
     Indication: Affective disorder
     Dosage: AMOUNT: 250 MILLIGRAM?THERAPY DURATION: 30 MONTHS
     Route: 065
  142. CITALOPRAM HYDROBROMIDE [Suspect]
     Active Substance: CITALOPRAM HYDROBROMIDE
     Indication: Schizophrenia
     Dosage: AMOUNT: 250 MILLIGRAM?THERAPY DURATION: 30 MONTHS
     Route: 065
  143. CITALOPRAM HYDROBROMIDE [Suspect]
     Active Substance: CITALOPRAM HYDROBROMIDE
     Indication: Psychotic disorder
     Dosage: AMOUNT: 250 MILLIGRAM?THERAPY DURATION: 30 MONTHS
     Route: 065
  144. CITALOPRAM HYDROBROMIDE [Suspect]
     Active Substance: CITALOPRAM HYDROBROMIDE
     Indication: Product used for unknown indication
     Dosage: AMOUNT: 250 MILLIGRAM?THERAPY DURATION: 30 MONTHS
     Route: 065
  145. CITALOPRAM HYDROBROMIDE [Suspect]
     Active Substance: CITALOPRAM HYDROBROMIDE
     Indication: Affective disorder
     Dosage: AMOUNT: 3 MILLIGRAM?NOT SPECIFIED DOSAGE FORM
     Route: 065
  146. CITALOPRAM HYDROBROMIDE [Suspect]
     Active Substance: CITALOPRAM HYDROBROMIDE
     Indication: Schizophrenia
     Dosage: AMOUNT: 3 MILLIGRAM?NOT SPECIFIED DOSAGE FORM
     Route: 065
  147. CITALOPRAM HYDROBROMIDE [Suspect]
     Active Substance: CITALOPRAM HYDROBROMIDE
     Indication: Psychotic disorder
     Dosage: AMOUNT: 3 MILLIGRAM?NOT SPECIFIED DOSAGE FORM
     Route: 065
  148. CITALOPRAM HYDROBROMIDE [Suspect]
     Active Substance: CITALOPRAM HYDROBROMIDE
     Indication: Product used for unknown indication
     Dosage: AMOUNT: 3 MILLIGRAM?NOT SPECIFIED DOSAGE FORM
     Route: 065
  149. CITALOPRAM HYDROBROMIDE [Suspect]
     Active Substance: CITALOPRAM HYDROBROMIDE
     Indication: Affective disorder
     Dosage: AMOUNT: 32 MILLIGRAM
     Route: 065
  150. CITALOPRAM HYDROBROMIDE [Suspect]
     Active Substance: CITALOPRAM HYDROBROMIDE
     Indication: Schizophrenia
     Dosage: AMOUNT: 32 MILLIGRAM
     Route: 065
  151. CITALOPRAM HYDROBROMIDE [Suspect]
     Active Substance: CITALOPRAM HYDROBROMIDE
     Indication: Psychotic disorder
     Dosage: AMOUNT: 32 MILLIGRAM
     Route: 065
  152. CITALOPRAM HYDROBROMIDE [Suspect]
     Active Substance: CITALOPRAM HYDROBROMIDE
     Indication: Product used for unknown indication
     Dosage: AMOUNT: 32 MILLIGRAM
     Route: 065
  153. CITALOPRAM HYDROBROMIDE [Suspect]
     Active Substance: CITALOPRAM HYDROBROMIDE
     Indication: Affective disorder
     Dosage: AMOUNT: 4 MILLIGRAM?NOT SPECIFIED DOSAGE FORM
     Route: 065
  154. CITALOPRAM HYDROBROMIDE [Suspect]
     Active Substance: CITALOPRAM HYDROBROMIDE
     Indication: Schizophrenia
     Dosage: AMOUNT: 4 MILLIGRAM?NOT SPECIFIED DOSAGE FORM
     Route: 065
  155. CITALOPRAM HYDROBROMIDE [Suspect]
     Active Substance: CITALOPRAM HYDROBROMIDE
     Indication: Psychotic disorder
     Dosage: AMOUNT: 4 MILLIGRAM?NOT SPECIFIED DOSAGE FORM
     Route: 065
  156. CITALOPRAM HYDROBROMIDE [Suspect]
     Active Substance: CITALOPRAM HYDROBROMIDE
     Indication: Product used for unknown indication
     Dosage: AMOUNT: 4 MILLIGRAM?NOT SPECIFIED DOSAGE FORM
     Route: 065
  157. CITALOPRAM HYDROBROMIDE [Suspect]
     Active Substance: CITALOPRAM HYDROBROMIDE
     Indication: Affective disorder
     Dosage: AMOUNT: 5 MILLIGRAM
     Route: 065
  158. CITALOPRAM HYDROBROMIDE [Suspect]
     Active Substance: CITALOPRAM HYDROBROMIDE
     Indication: Schizophrenia
     Dosage: AMOUNT: 5 MILLIGRAM
     Route: 065
  159. CITALOPRAM HYDROBROMIDE [Suspect]
     Active Substance: CITALOPRAM HYDROBROMIDE
     Indication: Psychotic disorder
     Dosage: AMOUNT: 5 MILLIGRAM
     Route: 065
  160. CITALOPRAM HYDROBROMIDE [Suspect]
     Active Substance: CITALOPRAM HYDROBROMIDE
     Indication: Product used for unknown indication
     Dosage: AMOUNT: 5 MILLIGRAM
     Route: 065
  161. CITALOPRAM HYDROBROMIDE [Suspect]
     Active Substance: CITALOPRAM HYDROBROMIDE
     Indication: Affective disorder
     Dosage: AMOUNT: 5 MILLIGRAM?THERAPY DURATION: 359 DAYS
     Route: 065
  162. CITALOPRAM HYDROBROMIDE [Suspect]
     Active Substance: CITALOPRAM HYDROBROMIDE
     Indication: Schizophrenia
     Dosage: AMOUNT: 5 MILLIGRAM?THERAPY DURATION: 359 DAYS
     Route: 065
  163. CITALOPRAM HYDROBROMIDE [Suspect]
     Active Substance: CITALOPRAM HYDROBROMIDE
     Indication: Psychotic disorder
     Dosage: AMOUNT: 5 MILLIGRAM?THERAPY DURATION: 359 DAYS
     Route: 065
  164. CITALOPRAM HYDROBROMIDE [Suspect]
     Active Substance: CITALOPRAM HYDROBROMIDE
     Indication: Product used for unknown indication
     Dosage: AMOUNT: 5 MILLIGRAM?THERAPY DURATION: 359 DAYS
     Route: 065
  165. CITALOPRAM HYDROBROMIDE [Suspect]
     Active Substance: CITALOPRAM HYDROBROMIDE
     Indication: Affective disorder
     Dosage: AMOUNT: 50 MILLIGRAM
     Route: 065
  166. CITALOPRAM HYDROBROMIDE [Suspect]
     Active Substance: CITALOPRAM HYDROBROMIDE
     Indication: Schizophrenia
     Dosage: AMOUNT: 50 MILLIGRAM
     Route: 065
  167. CITALOPRAM HYDROBROMIDE [Suspect]
     Active Substance: CITALOPRAM HYDROBROMIDE
     Indication: Psychotic disorder
     Dosage: AMOUNT: 50 MILLIGRAM
     Route: 065
  168. CITALOPRAM HYDROBROMIDE [Suspect]
     Active Substance: CITALOPRAM HYDROBROMIDE
     Indication: Product used for unknown indication
     Dosage: AMOUNT: 50 MILLIGRAM
     Route: 065
  169. CITALOPRAM HYDROBROMIDE [Suspect]
     Active Substance: CITALOPRAM HYDROBROMIDE
     Indication: Affective disorder
     Dosage: AMOUNT: 50 MILLIGRAM
     Route: 065
  170. CITALOPRAM HYDROBROMIDE [Suspect]
     Active Substance: CITALOPRAM HYDROBROMIDE
     Indication: Schizophrenia
     Dosage: AMOUNT: 50 MILLIGRAM
     Route: 065
  171. CITALOPRAM HYDROBROMIDE [Suspect]
     Active Substance: CITALOPRAM HYDROBROMIDE
     Indication: Psychotic disorder
     Dosage: AMOUNT: 50 MILLIGRAM
     Route: 065
  172. CITALOPRAM HYDROBROMIDE [Suspect]
     Active Substance: CITALOPRAM HYDROBROMIDE
     Indication: Product used for unknown indication
     Dosage: AMOUNT: 50 MILLIGRAM
     Route: 065
  173. CITALOPRAM HYDROBROMIDE [Suspect]
     Active Substance: CITALOPRAM HYDROBROMIDE
     Indication: Affective disorder
     Dosage: AMOUNT: 6 MILLIGRAM
     Route: 065
  174. CITALOPRAM HYDROBROMIDE [Suspect]
     Active Substance: CITALOPRAM HYDROBROMIDE
     Indication: Schizophrenia
     Dosage: AMOUNT: 6 MILLIGRAM
     Route: 065
  175. CITALOPRAM HYDROBROMIDE [Suspect]
     Active Substance: CITALOPRAM HYDROBROMIDE
     Indication: Psychotic disorder
     Dosage: AMOUNT: 6 MILLIGRAM
     Route: 065
  176. CITALOPRAM HYDROBROMIDE [Suspect]
     Active Substance: CITALOPRAM HYDROBROMIDE
     Indication: Product used for unknown indication
     Dosage: AMOUNT: 6 MILLIGRAM
     Route: 065
  177. CITALOPRAM HYDROBROMIDE [Suspect]
     Active Substance: CITALOPRAM HYDROBROMIDE
     Indication: Affective disorder
     Dosage: AMOUNT: 600 MILLIGRAM
     Route: 048
  178. CITALOPRAM HYDROBROMIDE [Suspect]
     Active Substance: CITALOPRAM HYDROBROMIDE
     Indication: Schizophrenia
     Dosage: AMOUNT: 600 MILLIGRAM
     Route: 048
  179. CITALOPRAM HYDROBROMIDE [Suspect]
     Active Substance: CITALOPRAM HYDROBROMIDE
     Indication: Psychotic disorder
     Dosage: AMOUNT: 600 MILLIGRAM
     Route: 048
  180. CITALOPRAM HYDROBROMIDE [Suspect]
     Active Substance: CITALOPRAM HYDROBROMIDE
     Indication: Product used for unknown indication
     Dosage: AMOUNT: 600 MILLIGRAM
     Route: 048
  181. CITALOPRAM HYDROBROMIDE [Suspect]
     Active Substance: CITALOPRAM HYDROBROMIDE
     Indication: Affective disorder
     Dosage: AMOUNT: 600 MILLIGRAM?NOT SPECIFIED DOSAGE FORM?THERAPY DURATION: 4 MONTHS
     Route: 065
  182. CITALOPRAM HYDROBROMIDE [Suspect]
     Active Substance: CITALOPRAM HYDROBROMIDE
     Indication: Schizophrenia
     Dosage: AMOUNT: 600 MILLIGRAM?NOT SPECIFIED DOSAGE FORM?THERAPY DURATION: 4 MONTHS
     Route: 065
  183. CITALOPRAM HYDROBROMIDE [Suspect]
     Active Substance: CITALOPRAM HYDROBROMIDE
     Indication: Psychotic disorder
     Dosage: AMOUNT: 600 MILLIGRAM?NOT SPECIFIED DOSAGE FORM?THERAPY DURATION: 4 MONTHS
     Route: 065
  184. CITALOPRAM HYDROBROMIDE [Suspect]
     Active Substance: CITALOPRAM HYDROBROMIDE
     Indication: Product used for unknown indication
     Dosage: AMOUNT: 600 MILLIGRAM?NOT SPECIFIED DOSAGE FORM?THERAPY DURATION: 4 MONTHS
     Route: 065
  185. CITALOPRAM HYDROBROMIDE [Suspect]
     Active Substance: CITALOPRAM HYDROBROMIDE
     Indication: Affective disorder
     Dosage: AMOUNT: 75 MILLIGRAM
     Route: 065
  186. CITALOPRAM HYDROBROMIDE [Suspect]
     Active Substance: CITALOPRAM HYDROBROMIDE
     Indication: Schizophrenia
     Dosage: AMOUNT: 75 MILLIGRAM
     Route: 065
  187. CITALOPRAM HYDROBROMIDE [Suspect]
     Active Substance: CITALOPRAM HYDROBROMIDE
     Indication: Psychotic disorder
     Dosage: AMOUNT: 75 MILLIGRAM
     Route: 065
  188. CITALOPRAM HYDROBROMIDE [Suspect]
     Active Substance: CITALOPRAM HYDROBROMIDE
     Indication: Product used for unknown indication
     Dosage: AMOUNT: 75 MILLIGRAM
     Route: 065
  189. CITALOPRAM HYDROBROMIDE [Suspect]
     Active Substance: CITALOPRAM HYDROBROMIDE
     Indication: Affective disorder
     Dosage: AMOUNT: 75 MILLIGRAM
     Route: 065
  190. CITALOPRAM HYDROBROMIDE [Suspect]
     Active Substance: CITALOPRAM HYDROBROMIDE
     Indication: Schizophrenia
     Dosage: AMOUNT: 75 MILLIGRAM
     Route: 065
  191. CITALOPRAM HYDROBROMIDE [Suspect]
     Active Substance: CITALOPRAM HYDROBROMIDE
     Indication: Psychotic disorder
     Dosage: AMOUNT: 75 MILLIGRAM
     Route: 065
  192. CITALOPRAM HYDROBROMIDE [Suspect]
     Active Substance: CITALOPRAM HYDROBROMIDE
     Indication: Product used for unknown indication
     Dosage: AMOUNT: 75 MILLIGRAM
     Route: 065
  193. CITALOPRAM HYDROBROMIDE [Suspect]
     Active Substance: CITALOPRAM HYDROBROMIDE
     Indication: Affective disorder
     Dosage: AMOUNT: 80 MILLIGRAM
     Route: 065
  194. CITALOPRAM HYDROBROMIDE [Suspect]
     Active Substance: CITALOPRAM HYDROBROMIDE
     Indication: Schizophrenia
     Dosage: AMOUNT: 80 MILLIGRAM
     Route: 065
  195. CITALOPRAM HYDROBROMIDE [Suspect]
     Active Substance: CITALOPRAM HYDROBROMIDE
     Indication: Psychotic disorder
     Dosage: AMOUNT: 80 MILLIGRAM
     Route: 065
  196. CITALOPRAM HYDROBROMIDE [Suspect]
     Active Substance: CITALOPRAM HYDROBROMIDE
     Indication: Product used for unknown indication
     Dosage: AMOUNT: 80 MILLIGRAM
     Route: 065
  197. CITALOPRAM HYDROBROMIDE [Suspect]
     Active Substance: CITALOPRAM HYDROBROMIDE
     Indication: Affective disorder
     Dosage: AMOUNT: 80 MILLIGRAM?THERAPY DURATION: 1095 DAYS
     Route: 065
  198. CITALOPRAM HYDROBROMIDE [Suspect]
     Active Substance: CITALOPRAM HYDROBROMIDE
     Indication: Schizophrenia
     Dosage: AMOUNT: 80 MILLIGRAM?THERAPY DURATION: 1095 DAYS
     Route: 065
  199. CITALOPRAM HYDROBROMIDE [Suspect]
     Active Substance: CITALOPRAM HYDROBROMIDE
     Indication: Psychotic disorder
     Dosage: AMOUNT: 80 MILLIGRAM?THERAPY DURATION: 1095 DAYS
     Route: 065
  200. CITALOPRAM HYDROBROMIDE [Suspect]
     Active Substance: CITALOPRAM HYDROBROMIDE
     Indication: Product used for unknown indication
     Dosage: AMOUNT: 80 MILLIGRAM?THERAPY DURATION: 1095 DAYS
     Route: 065
  201. CITALOPRAM HYDROBROMIDE [Suspect]
     Active Substance: CITALOPRAM HYDROBROMIDE
     Indication: Affective disorder
     Dosage: AMOUNT: 80 MILLIGRAM?THERAPY DURATION: 16 MONTHS
     Route: 065
  202. CITALOPRAM HYDROBROMIDE [Suspect]
     Active Substance: CITALOPRAM HYDROBROMIDE
     Indication: Schizophrenia
     Dosage: AMOUNT: 80 MILLIGRAM?THERAPY DURATION: 16 MONTHS
     Route: 065
  203. CITALOPRAM HYDROBROMIDE [Suspect]
     Active Substance: CITALOPRAM HYDROBROMIDE
     Indication: Psychotic disorder
     Dosage: AMOUNT: 80 MILLIGRAM?THERAPY DURATION: 16 MONTHS
     Route: 065
  204. CITALOPRAM HYDROBROMIDE [Suspect]
     Active Substance: CITALOPRAM HYDROBROMIDE
     Indication: Product used for unknown indication
     Dosage: AMOUNT: 80 MILLIGRAM?THERAPY DURATION: 16 MONTHS
     Route: 065
  205. CITALOPRAM HYDROBROMIDE [Suspect]
     Active Substance: CITALOPRAM HYDROBROMIDE
     Indication: Affective disorder
     Dosage: 1 EVERY 1 DAYS?AMOUNT: 100 MILLIGRAM
     Route: 048
  206. CITALOPRAM HYDROBROMIDE [Suspect]
     Active Substance: CITALOPRAM HYDROBROMIDE
     Indication: Schizophrenia
     Dosage: 1 EVERY 1 DAYS?AMOUNT: 100 MILLIGRAM
     Route: 048
  207. CITALOPRAM HYDROBROMIDE [Suspect]
     Active Substance: CITALOPRAM HYDROBROMIDE
     Indication: Psychotic disorder
     Dosage: 1 EVERY 1 DAYS?AMOUNT: 100 MILLIGRAM
     Route: 048
  208. CITALOPRAM HYDROBROMIDE [Suspect]
     Active Substance: CITALOPRAM HYDROBROMIDE
     Indication: Product used for unknown indication
     Dosage: 1 EVERY 1 DAYS?AMOUNT: 100 MILLIGRAM
     Route: 048
  209. CITALOPRAM HYDROBROMIDE [Suspect]
     Active Substance: CITALOPRAM HYDROBROMIDE
     Indication: Affective disorder
     Dosage: 1 EVERY 1 DAYS?AMOUNT: 1050 MILLIGRAM?NOT SPECIFIED DOSAGE FORM
     Route: 065
  210. CITALOPRAM HYDROBROMIDE [Suspect]
     Active Substance: CITALOPRAM HYDROBROMIDE
     Indication: Schizophrenia
     Dosage: 1 EVERY 1 DAYS?AMOUNT: 1050 MILLIGRAM?NOT SPECIFIED DOSAGE FORM
     Route: 065
  211. CITALOPRAM HYDROBROMIDE [Suspect]
     Active Substance: CITALOPRAM HYDROBROMIDE
     Indication: Psychotic disorder
     Dosage: 1 EVERY 1 DAYS?AMOUNT: 1050 MILLIGRAM?NOT SPECIFIED DOSAGE FORM
     Route: 065
  212. CITALOPRAM HYDROBROMIDE [Suspect]
     Active Substance: CITALOPRAM HYDROBROMIDE
     Indication: Product used for unknown indication
     Dosage: 1 EVERY 1 DAYS?AMOUNT: 1050 MILLIGRAM?NOT SPECIFIED DOSAGE FORM
     Route: 065
  213. CITALOPRAM HYDROBROMIDE [Suspect]
     Active Substance: CITALOPRAM HYDROBROMIDE
     Indication: Affective disorder
     Dosage: 1 EVERY 1 DAYS?AMOUNT: 1800 MILLIGRAM?NOT SPECIFIED DOSAGE FORM
     Route: 065
  214. CITALOPRAM HYDROBROMIDE [Suspect]
     Active Substance: CITALOPRAM HYDROBROMIDE
     Indication: Schizophrenia
     Dosage: 1 EVERY 1 DAYS?AMOUNT: 1800 MILLIGRAM?NOT SPECIFIED DOSAGE FORM
     Route: 065
  215. CITALOPRAM HYDROBROMIDE [Suspect]
     Active Substance: CITALOPRAM HYDROBROMIDE
     Indication: Psychotic disorder
     Dosage: 1 EVERY 1 DAYS?AMOUNT: 1800 MILLIGRAM?NOT SPECIFIED DOSAGE FORM
     Route: 065
  216. CITALOPRAM HYDROBROMIDE [Suspect]
     Active Substance: CITALOPRAM HYDROBROMIDE
     Indication: Product used for unknown indication
     Dosage: 1 EVERY 1 DAYS?AMOUNT: 1800 MILLIGRAM?NOT SPECIFIED DOSAGE FORM
     Route: 065
  217. CITALOPRAM HYDROBROMIDE [Suspect]
     Active Substance: CITALOPRAM HYDROBROMIDE
     Indication: Affective disorder
     Dosage: 1 EVERY 1 DAYS?AMOUNT: 2400 MILLIGRAM?NOT SPECIFIED DOSAGE FORM
     Route: 065
  218. CITALOPRAM HYDROBROMIDE [Suspect]
     Active Substance: CITALOPRAM HYDROBROMIDE
     Indication: Schizophrenia
     Dosage: 1 EVERY 1 DAYS?AMOUNT: 2400 MILLIGRAM?NOT SPECIFIED DOSAGE FORM
     Route: 065
  219. CITALOPRAM HYDROBROMIDE [Suspect]
     Active Substance: CITALOPRAM HYDROBROMIDE
     Indication: Psychotic disorder
     Dosage: 1 EVERY 1 DAYS?AMOUNT: 2400 MILLIGRAM?NOT SPECIFIED DOSAGE FORM
     Route: 065
  220. CITALOPRAM HYDROBROMIDE [Suspect]
     Active Substance: CITALOPRAM HYDROBROMIDE
     Indication: Product used for unknown indication
     Dosage: 1 EVERY 1 DAYS?AMOUNT: 2400 MILLIGRAM?NOT SPECIFIED DOSAGE FORM
     Route: 065
  221. CITALOPRAM HYDROBROMIDE [Suspect]
     Active Substance: CITALOPRAM HYDROBROMIDE
     Indication: Affective disorder
     Dosage: 1 EVERY 1 DAYS?AMOUNT: 350 MILLIGRAM
     Route: 048
  222. CITALOPRAM HYDROBROMIDE [Suspect]
     Active Substance: CITALOPRAM HYDROBROMIDE
     Indication: Schizophrenia
     Dosage: 1 EVERY 1 DAYS?AMOUNT: 350 MILLIGRAM
     Route: 048
  223. CITALOPRAM HYDROBROMIDE [Suspect]
     Active Substance: CITALOPRAM HYDROBROMIDE
     Indication: Psychotic disorder
     Dosage: 1 EVERY 1 DAYS?AMOUNT: 350 MILLIGRAM
     Route: 048
  224. CITALOPRAM HYDROBROMIDE [Suspect]
     Active Substance: CITALOPRAM HYDROBROMIDE
     Indication: Product used for unknown indication
     Dosage: 1 EVERY 1 DAYS?AMOUNT: 350 MILLIGRAM
     Route: 048
  225. CITALOPRAM HYDROBROMIDE [Suspect]
     Active Substance: CITALOPRAM HYDROBROMIDE
     Indication: Affective disorder
     Dosage: 1 EVERY 1 DAYS?AMOUNT: 350 MILLIGRAM?THERAPY DURATION: 151 MONTHS
     Route: 048
  226. CITALOPRAM HYDROBROMIDE [Suspect]
     Active Substance: CITALOPRAM HYDROBROMIDE
     Indication: Schizophrenia
     Dosage: 1 EVERY 1 DAYS?AMOUNT: 350 MILLIGRAM?THERAPY DURATION: 151 MONTHS
     Route: 048
  227. CITALOPRAM HYDROBROMIDE [Suspect]
     Active Substance: CITALOPRAM HYDROBROMIDE
     Indication: Psychotic disorder
     Dosage: 1 EVERY 1 DAYS?AMOUNT: 350 MILLIGRAM?THERAPY DURATION: 151 MONTHS
     Route: 048
  228. CITALOPRAM HYDROBROMIDE [Suspect]
     Active Substance: CITALOPRAM HYDROBROMIDE
     Indication: Product used for unknown indication
     Dosage: 1 EVERY 1 DAYS?AMOUNT: 350 MILLIGRAM?THERAPY DURATION: 151 MONTHS
     Route: 048
  229. CITALOPRAM HYDROBROMIDE [Suspect]
     Active Substance: CITALOPRAM HYDROBROMIDE
     Indication: Affective disorder
     Dosage: 1 EVERY 1 DAYS?AMOUNT: 40 MILLIGRAM?NOT SPECIFIED DOSAGE FORM?THERAPY DURATION: 9 MONTHS
     Route: 065
  230. CITALOPRAM HYDROBROMIDE [Suspect]
     Active Substance: CITALOPRAM HYDROBROMIDE
     Indication: Schizophrenia
     Dosage: 1 EVERY 1 DAYS?AMOUNT: 40 MILLIGRAM?NOT SPECIFIED DOSAGE FORM?THERAPY DURATION: 9 MONTHS
     Route: 065
  231. CITALOPRAM HYDROBROMIDE [Suspect]
     Active Substance: CITALOPRAM HYDROBROMIDE
     Indication: Psychotic disorder
     Dosage: 1 EVERY 1 DAYS?AMOUNT: 40 MILLIGRAM?NOT SPECIFIED DOSAGE FORM?THERAPY DURATION: 9 MONTHS
     Route: 065
  232. CITALOPRAM HYDROBROMIDE [Suspect]
     Active Substance: CITALOPRAM HYDROBROMIDE
     Indication: Product used for unknown indication
     Dosage: 1 EVERY 1 DAYS?AMOUNT: 40 MILLIGRAM?NOT SPECIFIED DOSAGE FORM?THERAPY DURATION: 9 MONTHS
     Route: 065
  233. CITALOPRAM HYDROBROMIDE [Suspect]
     Active Substance: CITALOPRAM HYDROBROMIDE
     Indication: Affective disorder
     Dosage: 1 EVERY 1 DAYS?AMOUNT: 600 MILLIGRAM
     Route: 048
  234. CITALOPRAM HYDROBROMIDE [Suspect]
     Active Substance: CITALOPRAM HYDROBROMIDE
     Indication: Schizophrenia
     Dosage: 1 EVERY 1 DAYS?AMOUNT: 600 MILLIGRAM
     Route: 048
  235. CITALOPRAM HYDROBROMIDE [Suspect]
     Active Substance: CITALOPRAM HYDROBROMIDE
     Indication: Psychotic disorder
     Dosage: 1 EVERY 1 DAYS?AMOUNT: 600 MILLIGRAM
     Route: 048
  236. CITALOPRAM HYDROBROMIDE [Suspect]
     Active Substance: CITALOPRAM HYDROBROMIDE
     Indication: Product used for unknown indication
     Dosage: 1 EVERY 1 DAYS?AMOUNT: 600 MILLIGRAM
     Route: 048
  237. CITALOPRAM HYDROBROMIDE [Suspect]
     Active Substance: CITALOPRAM HYDROBROMIDE
     Indication: Affective disorder
     Dosage: 1 EVERY 1 DAYS?AMOUNT: 8 MILLIGRAM?NOT SPECIFIED DOSAGE FORM
     Route: 065
  238. CITALOPRAM HYDROBROMIDE [Suspect]
     Active Substance: CITALOPRAM HYDROBROMIDE
     Indication: Schizophrenia
     Dosage: 1 EVERY 1 DAYS?AMOUNT: 8 MILLIGRAM?NOT SPECIFIED DOSAGE FORM
     Route: 065
  239. CITALOPRAM HYDROBROMIDE [Suspect]
     Active Substance: CITALOPRAM HYDROBROMIDE
     Indication: Psychotic disorder
     Dosage: 1 EVERY 1 DAYS?AMOUNT: 8 MILLIGRAM?NOT SPECIFIED DOSAGE FORM
     Route: 065
  240. CITALOPRAM HYDROBROMIDE [Suspect]
     Active Substance: CITALOPRAM HYDROBROMIDE
     Indication: Product used for unknown indication
     Dosage: 1 EVERY 1 DAYS?AMOUNT: 8 MILLIGRAM?NOT SPECIFIED DOSAGE FORM
     Route: 065
  241. CITALOPRAM HYDROBROMIDE [Suspect]
     Active Substance: CITALOPRAM HYDROBROMIDE
     Indication: Affective disorder
     Route: 065
  242. CITALOPRAM HYDROBROMIDE [Suspect]
     Active Substance: CITALOPRAM HYDROBROMIDE
     Indication: Schizophrenia
     Route: 065
  243. CITALOPRAM HYDROBROMIDE [Suspect]
     Active Substance: CITALOPRAM HYDROBROMIDE
     Indication: Psychotic disorder
     Route: 065
  244. CITALOPRAM HYDROBROMIDE [Suspect]
     Active Substance: CITALOPRAM HYDROBROMIDE
     Indication: Product used for unknown indication
     Route: 065
  245. CITALOPRAM HYDROBROMIDE [Suspect]
     Active Substance: CITALOPRAM HYDROBROMIDE
     Indication: Affective disorder
     Route: 048
  246. CITALOPRAM HYDROBROMIDE [Suspect]
     Active Substance: CITALOPRAM HYDROBROMIDE
     Indication: Schizophrenia
     Route: 048
  247. CITALOPRAM HYDROBROMIDE [Suspect]
     Active Substance: CITALOPRAM HYDROBROMIDE
     Indication: Psychotic disorder
     Route: 048
  248. CITALOPRAM HYDROBROMIDE [Suspect]
     Active Substance: CITALOPRAM HYDROBROMIDE
     Indication: Product used for unknown indication
     Route: 048
  249. CITALOPRAM HYDROBROMIDE [Suspect]
     Active Substance: CITALOPRAM HYDROBROMIDE
     Indication: Affective disorder
     Route: 065
  250. CITALOPRAM HYDROBROMIDE [Suspect]
     Active Substance: CITALOPRAM HYDROBROMIDE
     Indication: Schizophrenia
     Route: 065
  251. CITALOPRAM HYDROBROMIDE [Suspect]
     Active Substance: CITALOPRAM HYDROBROMIDE
     Indication: Psychotic disorder
     Route: 065
  252. CITALOPRAM HYDROBROMIDE [Suspect]
     Active Substance: CITALOPRAM HYDROBROMIDE
     Indication: Product used for unknown indication
     Route: 065
  253. CITALOPRAM HYDROBROMIDE [Suspect]
     Active Substance: CITALOPRAM HYDROBROMIDE
     Indication: Affective disorder
     Route: 065
  254. CITALOPRAM HYDROBROMIDE [Suspect]
     Active Substance: CITALOPRAM HYDROBROMIDE
     Indication: Schizophrenia
     Route: 065
  255. CITALOPRAM HYDROBROMIDE [Suspect]
     Active Substance: CITALOPRAM HYDROBROMIDE
     Indication: Psychotic disorder
     Route: 065
  256. CITALOPRAM HYDROBROMIDE [Suspect]
     Active Substance: CITALOPRAM HYDROBROMIDE
     Indication: Product used for unknown indication
     Route: 065
  257. CITALOPRAM HYDROBROMIDE [Suspect]
     Active Substance: CITALOPRAM HYDROBROMIDE
     Indication: Affective disorder
     Dosage: TABLETS DOSAGE FORM
     Route: 065
  258. CITALOPRAM HYDROBROMIDE [Suspect]
     Active Substance: CITALOPRAM HYDROBROMIDE
     Indication: Schizophrenia
     Dosage: TABLETS DOSAGE FORM
     Route: 065
  259. CITALOPRAM HYDROBROMIDE [Suspect]
     Active Substance: CITALOPRAM HYDROBROMIDE
     Indication: Psychotic disorder
     Dosage: TABLETS DOSAGE FORM
     Route: 065
  260. CITALOPRAM HYDROBROMIDE [Suspect]
     Active Substance: CITALOPRAM HYDROBROMIDE
     Indication: Product used for unknown indication
     Dosage: TABLETS DOSAGE FORM
     Route: 065
  261. ZIPRASIDONE MESYLATE [Suspect]
     Active Substance: ZIPRASIDONE MESYLATE
     Indication: Schizophrenia
     Dosage: AMOUNT: 100 MILLIGRAM
     Route: 048
  262. ZIPRASIDONE MESYLATE [Suspect]
     Active Substance: ZIPRASIDONE MESYLATE
     Indication: Product used for unknown indication
     Dosage: AMOUNT: 100 MILLIGRAM
     Route: 048
  263. ZIPRASIDONE MESYLATE [Suspect]
     Active Substance: ZIPRASIDONE MESYLATE
     Indication: Schizophrenia
     Route: 065
  264. ZIPRASIDONE MESYLATE [Suspect]
     Active Substance: ZIPRASIDONE MESYLATE
     Indication: Product used for unknown indication
     Route: 065

REACTIONS (20)
  - Akathisia [Unknown]
  - Antipsychotic drug level below therapeutic [Unknown]
  - Disinhibition [Unknown]
  - Drug ineffective [Unknown]
  - Dyslipidaemia [Unknown]
  - Euphoric mood [Unknown]
  - Hypertension [Unknown]
  - Increased appetite [Unknown]
  - Irritability [Unknown]
  - Leukopenia [Unknown]
  - Obesity [Unknown]
  - Obsessive-compulsive disorder [Unknown]
  - Prescribed overdose [Unknown]
  - Product use in unapproved indication [Unknown]
  - Schizoaffective disorder [Unknown]
  - Suicide attempt [Unknown]
  - Therapeutic product effect incomplete [Unknown]
  - Therapeutic product effect variable [Unknown]
  - Toxicity to various agents [Unknown]
  - Weight increased [Unknown]
